FAERS Safety Report 4578373-9 (Version None)
Quarter: 2005Q1

REPORT INFORMATION
  Report Type: 
  Country: None (occurrence: None)
  Receive Date: 20050202
  Receipt Date: 20050202
  Transmission Date: 20050727
  Serious: No
  Sender: FDA-Public Use
  Company Number: None

PATIENT
  Age: 84 Year
  Sex: Female
  Weight: 77.1115 kg

DRUGS (1)
  1. CEFADROXIL [Suspect]

REACTIONS (8)
  - ANOREXIA [None]
  - DEPRESSION [None]
  - DIZZINESS [None]
  - DYSSTASIA [None]
  - GENITAL PRURITUS FEMALE [None]
  - HYPOAESTHESIA [None]
  - THIRST [None]
  - VISION BLURRED [None]
